FAERS Safety Report 9198025 (Version 4)
Quarter: 2014Q1

REPORT INFORMATION
  Report Type: Spontaneous
  Country: CA (occurrence: CA)
  Receive Date: 20130328
  Receipt Date: 20140213
  Transmission Date: 20141002
  Serious: Yes (Hospitalization, Other)
  Sender: FDA-Public Use
  Company Number: CA-GILEAD-2013-0072670

PATIENT
  Age: 64 Year
  Sex: Female

DRUGS (12)
  1. AMBRISENTAN [Suspect]
     Indication: PULMONARY HYPERTENSION
     Dosage: 5MG PER DAY
     Route: 048
     Dates: start: 20101222
  2. REVATIO [Concomitant]
  3. FUROSEMIDE [Concomitant]
  4. SYNTHROID [Concomitant]
  5. LYRICA [Concomitant]
  6. WARFARIN [Concomitant]
  7. APO-K [Concomitant]
  8. MULTIVITAMIN                       /07504101/ [Concomitant]
  9. MORPHINE [Concomitant]
  10. AERIUS                             /01398501/ [Concomitant]
  11. VENLAFAXINE [Concomitant]
  12. SPIRONOLACTONE [Concomitant]

REACTIONS (9)
  - Cardiomegaly [Unknown]
  - Fall [Not Recovered/Not Resolved]
  - Lower limb fracture [Not Recovered/Not Resolved]
  - Pyrexia [Not Recovered/Not Resolved]
  - Dyspnoea [Not Recovered/Not Resolved]
  - Haemoglobin decreased [Unknown]
  - Nausea [Not Recovered/Not Resolved]
  - Vomiting [Not Recovered/Not Resolved]
  - Headache [Not Recovered/Not Resolved]
